FAERS Safety Report 13266609 (Version 1)
Quarter: 2017Q1

REPORT INFORMATION
  Report Type: Spontaneous
  Country: DE (occurrence: DE)
  Receive Date: 20170223
  Receipt Date: 20170223
  Transmission Date: 20170428
  Serious: Yes (Other)
  Sender: FDA-Public Use
  Company Number: DE-BRISTOL-MYERS SQUIBB COMPANY-BMS-2017-014547

PATIENT
  Age: 72 Year
  Sex: Male

DRUGS (1)
  1. IPILIMUMAB [Suspect]
     Active Substance: IPILIMUMAB
     Indication: LENTIGO MALIGNA
     Dosage: 3 MG/KG, UNK
     Route: 065

REACTIONS (2)
  - Tumour excision [Unknown]
  - Malignant neoplasm progression [Unknown]
